FAERS Safety Report 20516393 (Version 1)
Quarter: 2022Q1

REPORT INFORMATION
  Report Type: Spontaneous
  Country: US (occurrence: US)
  Receive Date: 20220225
  Receipt Date: 20220225
  Transmission Date: 20220424
  Serious: No
  Sender: FDA-Public Use
  Company Number: US-CIPLA LTD.-2021US07018

PATIENT

DRUGS (1)
  1. CALCIUM ACETATE [Suspect]
     Active Substance: CALCIUM ACETATE
     Indication: Hyperphosphataemia
     Dosage: UNK, MANY TIMES A DAY, AFTER EVERY MEAL
     Route: 065

REACTIONS (1)
  - Diarrhoea [Not Recovered/Not Resolved]
